FAERS Safety Report 9838394 (Version 1)
Quarter: 2014Q1

REPORT INFORMATION
  Report Type: Spontaneous
  Country: US (occurrence: US)
  Receive Date: 20140123
  Receipt Date: 20140123
  Transmission Date: 20141002
  Serious: No
  Sender: FDA-Public Use
  Company Number: US-GILEAD-2011-0047722

PATIENT
  Age: 85 Year
  Sex: Male

DRUGS (8)
  1. CAYSTON [Suspect]
     Indication: BRONCHIECTASIS
     Dosage: 75 MG, UNK
     Route: 055
     Dates: start: 20110902, end: 20110930
  2. CAYSTON [Suspect]
     Dosage: 75 UNK, UNK
     Route: 055
     Dates: start: 20111028, end: 20111126
  3. HYDRALAZINE [Concomitant]
  4. FLOMAX                             /01280302/ [Concomitant]
  5. PROSCAR [Concomitant]
  6. ADVAIR [Concomitant]
  7. ALLOPURINOL [Concomitant]
  8. LIPITOR [Concomitant]

REACTIONS (2)
  - Dyspnoea [Not Recovered/Not Resolved]
  - Cough [Not Recovered/Not Resolved]
